FAERS Safety Report 22652362 (Version 3)
Quarter: 2023Q2

REPORT INFORMATION
  Report Type: Report from Study
  Country: US (occurrence: US)
  Receive Date: 20230628
  Receipt Date: 20230630
  Transmission Date: 20230721
  Serious: Yes (Hospitalization)
  Sender: FDA-Public Use
  Company Number: US-002147023-NVSC2023US147704

PATIENT
  Sex: Female
  Weight: 53.977 kg

DRUGS (2)
  1. TREPROSTINIL [Suspect]
     Active Substance: TREPROSTINIL
     Indication: Pulmonary arterial hypertension
     Dosage: 181 NG/KG/MIN, CONT
     Route: 042
     Dates: start: 20230517
  2. TREPROSTINIL [Suspect]
     Active Substance: TREPROSTINIL
     Dosage: 181 NG/KG/MIN, CONT
     Route: 042

REACTIONS (3)
  - Fluid retention [Unknown]
  - Nausea [Unknown]
  - Vomiting [Unknown]
